FAERS Safety Report 21815957 (Version 2)
Quarter: 2023Q4

REPORT INFORMATION
  Report Type: Spontaneous
  Country: FR (occurrence: FR)
  Receive Date: 20230104
  Receipt Date: 20231027
  Transmission Date: 20240110
  Serious: Yes (Death, Life-Threatening, Hospitalization, Other)
  Sender: FDA-Public Use
  Company Number: None

PATIENT
  Age: 93 Year
  Sex: Female

DRUGS (6)
  1. KETOPROFEN [Suspect]
     Active Substance: KETOPROFEN
     Indication: Analgesic intervention supportive therapy
     Dosage: 50 MG, TID; 1 CAPSULE 3 TIMES A DAY
     Route: 048
     Dates: start: 20211012, end: 20211018
  2. TRAMADOL HYDROCHLORIDE [Suspect]
     Active Substance: TRAMADOL HYDROCHLORIDE
     Indication: Analgesic intervention supportive therapy
     Dosage: 50 MG
     Route: 048
     Dates: start: 20211007, end: 20211020
  3. LOVENOX [Suspect]
     Active Substance: ENOXAPARIN SODIUM
     Indication: Analgesic intervention supportive therapy
     Dosage: UNK UNK, QD; 1 DOSE IN THE EVENING
     Route: 030
     Dates: start: 20211007, end: 20211020
  4. PANTOPRAZOLE [Suspect]
     Active Substance: PANTOPRAZOLE
     Indication: Product used for unknown indication
     Dosage: 40 MG, QD; 1 TABLET IN THE EVENING
     Route: 048
     Dates: start: 20211007, end: 20211020
  5. OFLOXACIN [Suspect]
     Active Substance: OFLOXACIN
     Indication: Antibiotic therapy
     Dosage: 200 MG, BID
     Route: 048
     Dates: start: 20211012, end: 20211013
  6. CEFIXIME [Concomitant]
     Active Substance: CEFIXIME
     Indication: Antibiotic therapy
     Dosage: UNK
     Route: 048
     Dates: start: 20211013, end: 20211015

REACTIONS (1)
  - Toxic epidermal necrolysis [Fatal]

NARRATIVE: CASE EVENT DATE: 20211013
